FAERS Safety Report 22907374 (Version 3)
Quarter: 2023Q4

REPORT INFORMATION
  Report Type: Report from Study
  Country: US (occurrence: US)
  Receive Date: 20230905
  Receipt Date: 20231202
  Transmission Date: 20240109
  Serious: Yes (Other)
  Sender: FDA-Public Use
  Company Number: US-ABBVIE-5394005

PATIENT
  Sex: Female

DRUGS (3)
  1. HUMIRA [Suspect]
     Active Substance: ADALIMUMAB
     Indication: Psoriatic arthropathy
     Dosage: FIRST ADMIN DATE-2023
     Route: 058
     Dates: end: 20231026
  2. HUMIRA [Suspect]
     Active Substance: ADALIMUMAB
     Dosage: FIRST ADMIN DATE: 2023, CITRATE FREE,  STRENGTH:40 MG
     Route: 058
     Dates: end: 202308
  3. HUMIRA [Suspect]
     Active Substance: ADALIMUMAB
     Dosage: START DATE TEXT: -MAY-2023 TO  -JUN-2023?LAST ADMIN DATE: 2023,CITRATE FREE, STRENGTH:40 MG
     Route: 058

REACTIONS (11)
  - Paracentesis [Unknown]
  - Headache [Unknown]
  - Malaise [Not Recovered/Not Resolved]
  - Chills [Unknown]
  - Sexually transmitted disease [Unknown]
  - Ascites [Recovering/Resolving]
  - Diarrhoea [Unknown]
  - Device difficult to use [Unknown]
  - Gastric dilatation [Recovering/Resolving]
  - Drug ineffective [Not Recovered/Not Resolved]
  - Gastrointestinal disorder [Unknown]

NARRATIVE: CASE EVENT DATE: 20230101
